FAERS Safety Report 6234642-8 (Version None)
Quarter: 2009Q2

REPORT INFORMATION
  Report Type: 
  Country: None (occurrence: None)
  Receive Date: 20090615
  Receipt Date: 20090602
  Transmission Date: 20091009
  Serious: Yes (Hospitalization)
  Sender: FDA-Public Use
  Company Number: FR-WYE-H07734009

PATIENT
  Age: 56 Year
  Sex: Female

DRUGS (3)
  1. INIPOMP (PANTOPRAZOLE, TABLET, DELAYED RELEASE) [Suspect]
     Indication: PROPHYLAXIS AGAINST GASTROINTESTINAL ULCER
     Dosage: 20 MG 1X PER 1 DAY
     Route: 048
     Dates: start: 20080917
  2. PREDNISONE [Suspect]
     Indication: SARCOIDOSIS
     Dosage: DOSE WAS REDUCED
     Route: 048
     Dates: start: 20081104
  3. PREDNISONE [Suspect]
     Dosage: 40 MG 1X PER 1 DAY
     Route: 048
     Dates: start: 20080917, end: 20081103

REACTIONS (8)
  - CHOLESTASIS [None]
  - DIABETES MELLITUS [None]
  - GENERAL PHYSICAL HEALTH DETERIORATION [None]
  - GLYCOSYLATED HAEMOGLOBIN INCREASED [None]
  - HEPATOMEGALY [None]
  - HYPERGAMMAGLOBULINAEMIA [None]
  - LYMPHOPENIA [None]
  - VISUAL ACUITY REDUCED [None]
